FAERS Safety Report 17099087 (Version 2)
Quarter: 2019Q4

REPORT INFORMATION
  Report Type: Spontaneous
  Country: LU (occurrence: LU)
  Receive Date: 20191202
  Receipt Date: 20191216
  Transmission Date: 20200122
  Serious: Yes (Hospitalization)
  Sender: FDA-Public Use
  Company Number: LU-ROCHE-2478271

PATIENT
  Age: 48 Year
  Sex: Female
  Weight: 70 kg

DRUGS (8)
  1. ONDANSETRON [Suspect]
     Active Substance: ONDANSETRON
     Indication: PROPHYLAXIS OF NAUSEA AND VOMITING
     Dosage: MOST RECENT DOSE PRIOR TO AE 21/OCT/2019
     Route: 042
     Dates: start: 20191021
  2. BEVACIZUMAB. [Suspect]
     Active Substance: BEVACIZUMAB
     Indication: ADENOCARCINOMA OF COLON
     Dosage: MOST RECENT DOSE PRIOR TO AE 21/OCT/2019
     Route: 042
     Dates: start: 20191021
  3. DEXAMETHASONE. [Suspect]
     Active Substance: DEXAMETHASONE
     Indication: PROPHYLAXIS OF NAUSEA AND VOMITING
     Dosage: MOST RECENT DOSE PRIOR TO AE 21/OCT/2019
     Route: 042
     Dates: start: 20191021
  4. APREPITANT. [Suspect]
     Active Substance: APREPITANT
     Indication: PROPHYLAXIS OF NAUSEA AND VOMITING
     Dosage: MOST RECENT DOSE PRIOR TO AE 21/OCT/2019
     Route: 048
     Dates: start: 20191021
  5. ELOXATIN [Suspect]
     Active Substance: OXALIPLATIN
     Indication: ADENOCARCINOMA OF COLON
     Route: 042
     Dates: start: 20191021, end: 20191021
  6. ATROPINE. [Suspect]
     Active Substance: ATROPINE
     Indication: PRODUCT USED FOR UNKNOWN INDICATION
     Dosage: MOST RECENT DOSE PRIOR TO AE 21/OCT/2019
     Route: 058
     Dates: start: 20191021
  7. IRINOTECAN [Suspect]
     Active Substance: IRINOTECAN
     Indication: ADENOCARCINOMA OF COLON
     Dosage: MOST RECENT DOSE PRIOR TO AE 21/OCT/2019
     Route: 042
     Dates: start: 20191021
  8. FOLINATE DE CALCIUM [Suspect]
     Active Substance: LEUCOVORIN CALCIUM
     Indication: ADENOCARCINOMA OF COLON
     Dosage: MOST RECENT DOSE PRIOR TO AE 21/OCT/2019
     Route: 042
     Dates: start: 20191021

REACTIONS (2)
  - Nausea [Recovered/Resolved]
  - Extrapyramidal disorder [Recovered/Resolved]

NARRATIVE: CASE EVENT DATE: 20191021
